FAERS Safety Report 7493322-1 (Version None)
Quarter: 2011Q2

REPORT INFORMATION
  Report Type: 
  Country: None (occurrence: None)
  Receive Date: 20110520
  Receipt Date: 20110418
  Transmission Date: 20111010
  Serious: Yes (Hospitalization)
  Sender: FDA-Public Use
  Company Number: US-BAYER-201041415NA

PATIENT
  Age: 33 Year
  Sex: Female
  Weight: 97.506 kg

DRUGS (8)
  1. YASMIN [Suspect]
     Indication: ACNE
  2. YAZ [Suspect]
     Indication: ACNE
  3. DROSPIRENONE AND ETHINYL ESTRADIOL [Suspect]
     Indication: ACNE
  4. ZANTAC [Concomitant]
  5. DROSPIRENONE AND ETHINYL ESTRADIOL [Suspect]
     Indication: POLYCYSTIC OVARIES
  6. METROGEL [Concomitant]
  7. YAZ [Suspect]
     Indication: POLYCYSTIC OVARIES
  8. YASMIN [Suspect]
     Indication: POLYCYSTIC OVARIES

REACTIONS (2)
  - GALLBLADDER DISORDER [None]
  - CHOLECYSTITIS [None]
